FAERS Safety Report 5896467-2 (Version None)
Quarter: 2008Q3

REPORT INFORMATION
  Report Type: 
  Country: None (occurrence: None)
  Receive Date: 20080924
  Receipt Date: 20070720
  Transmission Date: 20090109
  Serious: Yes (Other)
  Sender: FDA-Public Use
  Company Number: US-BAYER-200711988BWH

PATIENT
  Age: 76 Year
  Sex: Female
  Weight: 54 kg

DRUGS (7)
  1. AVELOX [Suspect]
     Indication: BRONCHITIS
     Dosage: TOTAL DAILY DOSE: 400 MG  UNIT DOSE: 400 MG
     Route: 048
     Dates: start: 20070604
  2. AVELOX [Suspect]
     Dosage: TOTAL DAILY DOSE: 400 MG  UNIT DOSE: 400 MG
     Route: 048
     Dates: start: 20070611
  3. TOPROL-XL [Concomitant]
  4. LIPITOR [Concomitant]
  5. SYNTHROID [Concomitant]
  6. PLAVIX [Concomitant]
  7. DIAZEPAM [Concomitant]

REACTIONS (8)
  - ASTHENIA [None]
  - BALANCE DISORDER [None]
  - DIZZINESS [None]
  - DRY MOUTH [None]
  - HEAD DISCOMFORT [None]
  - HYPOAESTHESIA [None]
  - MUSCULAR WEAKNESS [None]
  - SENSATION OF HEAVINESS [None]
